FAERS Safety Report 11178848 (Version 4)
Quarter: 2015Q3

REPORT INFORMATION
  Report Type: Report from Study
  Country: RU (occurrence: RU)
  Receive Date: 20150610
  Receipt Date: 20150908
  Transmission Date: 20151125
  Serious: Yes (Death, Hospitalization)
  Sender: FDA-Public Use
  Company Number: RU-AMGEN-RUSCT2015030552

PATIENT
  Age: 80 Year
  Sex: Female
  Weight: 58 kg

DRUGS (10)
  1. BISOPROLOL [Concomitant]
     Active Substance: BISOPROLOL
     Indication: CARDIAC FIBRILLATION
     Dosage: 5 MG, BID
     Route: 048
     Dates: start: 20141024
  2. CARFILZOMIB [Suspect]
     Active Substance: CARFILZOMIB
     Indication: PLASMA CELL MYELOMA
     Dosage: 36 MG/M2, PER CHEMO REGIM
     Route: 042
     Dates: start: 20140909, end: 20150324
  3. PREDNISONE. [Suspect]
     Active Substance: PREDNISONE
     Indication: PLASMA CELL MYELOMA
     Dosage: 105 MG, PER CHEMO REGIM
     Route: 048
     Dates: start: 20140909, end: 20150228
  4. ACICLOVIR [Concomitant]
     Active Substance: ACYCLOVIR
     Indication: ANTIVIRAL PROPHYLAXIS
     Dosage: 400 MG, QD
     Route: 048
     Dates: start: 20140909
  5. AZITHROMYCIN [Concomitant]
     Active Substance: AZITHROMYCIN ANHYDROUS
     Indication: BODY TEMPERATURE INCREASED
     Dosage: 500 MG, QD
     Route: 048
     Dates: start: 20150325, end: 20150327
  6. MELPHALAN [Suspect]
     Active Substance: MELPHALAN
     Indication: PLASMA CELL MYELOMA
     Dosage: 10 MG, PER CHEMO REGIM
     Route: 048
     Dates: start: 20140909, end: 20150228
  7. EUTIROX [Concomitant]
     Active Substance: LEVOTHYROXINE SODIUM
     Indication: HYPOTHYROIDISM
     Dosage: 50 MG, QOD
     Route: 048
     Dates: start: 201010
  8. AMIKACIN [Concomitant]
     Active Substance: AMIKACIN
     Indication: BODY TEMPERATURE INCREASED
     Dosage: 500 MG, BID
     Route: 042
     Dates: start: 20150327, end: 20150328
  9. WARFARIN [Concomitant]
     Active Substance: WARFARIN
     Indication: CARDIAC FIBRILLATION
     Dosage: 2.5 MG, QOD
     Route: 048
     Dates: start: 20141024
  10. CEFOPERAZONE SODIUM [Concomitant]
     Active Substance: CEFOPERAZONE SODIUM
     Indication: BODY TEMPERATURE INCREASED
     Dosage: 3 MG, BID
     Route: 042
     Dates: start: 20150327

REACTIONS (1)
  - Acute kidney injury [Fatal]

NARRATIVE: CASE EVENT DATE: 20150328
